FAERS Safety Report 9298233 (Version 1)
Quarter: 2013Q2

REPORT INFORMATION
  Report Type: Spontaneous
  Country: US (occurrence: US)
  Receive Date: 20130520
  Receipt Date: 20130520
  Transmission Date: 20140414
  Serious: No
  Sender: FDA-Public Use
  Company Number: US-PFIZER INC-2013154427

PATIENT
  Age: 29 Year
  Sex: Male
  Weight: 74 kg

DRUGS (2)
  1. LYRICA [Suspect]
     Indication: ABDOMINAL PAIN
     Dosage: 150 MG, 1X/DAY
     Route: 048
     Dates: start: 2012
  2. ACIPHEX [Concomitant]
     Indication: ABDOMINAL PAIN
     Dosage: UNK

REACTIONS (5)
  - Off label use [Unknown]
  - Dyspepsia [Not Recovered/Not Resolved]
  - Abdominal discomfort [Not Recovered/Not Resolved]
  - Nausea [Not Recovered/Not Resolved]
  - Vomiting [Not Recovered/Not Resolved]
